FAERS Safety Report 7130901-5 (Version None)
Quarter: 2010Q4

REPORT INFORMATION
  Report Type: 
  Country: None (occurrence: None)
  Receive Date: 20101101
  Receipt Date: 20100910
  Transmission Date: 20110411
  Serious: Yes (Hospitalization)
  Sender: FDA-Public Use
  Company Number: AMAG201000249

PATIENT
  Age: 54 Year
  Sex: Male
  Weight: 66.7 kg

DRUGS (14)
  1. FERAHEME [Suspect]
     Indication: IRON DEFICIENCY ANAEMIA
     Dosage: 4 ML (120 MG), SINGLE, INTRAVENOUS
     Route: 042
     Dates: start: 20100525, end: 20100525
  2. FERAHEME [Suspect]
     Indication: NEPHROGENIC ANAEMIA
     Dosage: 4 ML (120 MG), SINGLE, INTRAVENOUS
     Route: 042
     Dates: start: 20100525, end: 20100525
  3. ARANESP [Concomitant]
  4. ALDACTOME (POTASSIUM CANRENOATE) [Concomitant]
  5. CELLCEPT [Concomitant]
  6. LACTULOSE [Concomitant]
  7. LANTUS [Concomitant]
  8. FUROSEMIDE (FUROSEMIDE SODIUM) [Concomitant]
  9. MAGNESIUM OXIDE (MAGNESIUM OXIDE) [Concomitant]
  10. METOLAZONE [Concomitant]
  11. NOVOLOG [Concomitant]
  12. PROTONIX [Concomitant]
  13. RIFAXIMIN (RIFAXIMIN) [Concomitant]
  14. SOLU-MEDROL [Concomitant]

REACTIONS (1)
  - ANAPHYLACTIC REACTION [None]
